FAERS Safety Report 8906439 (Version 3)
Quarter: 2013Q3

REPORT INFORMATION
  Report Type: Spontaneous
  Country: US (occurrence: None)
  Receive Date: 20121108
  Receipt Date: 20130815
  Transmission Date: 20140515
  Serious: Yes (Hospitalization, Other)
  Sender: FDA-Public Use
  Company Number: ADR-2012-01937

PATIENT
  Sex: Male

DRUGS (3)
  1. BACLOFEN INTRATHECAL (BACLOFEN INJECTION) [Suspect]
     Indication: PAIN
  2. DILAUDID (HYDROMORPHONE) [Concomitant]
  3. BUPIVACAINE [Concomitant]

REACTIONS (13)
  - Personality change [None]
  - Therapeutic response decreased [None]
  - Contusion [None]
  - Skin lesion [None]
  - Fall [None]
  - Somnolence [None]
  - Weight decreased [None]
  - Implant site bruising [None]
  - Device ineffective [None]
  - Abdominal distension [None]
  - Somnolence [None]
  - Syncope [None]
  - Implant site haematoma [None]
